FAERS Safety Report 17043421 (Version 1)
Quarter: 2019Q4

REPORT INFORMATION
  Report Type: Spontaneous
  Country: US (occurrence: US)
  Receive Date: 20191118
  Receipt Date: 20191118
  Transmission Date: 20200122
  Serious: No
  Sender: FDA-Public Use
  Company Number: US-THERAPEUTICSMD-2019TMD02542

PATIENT
  Age: 45 Year
  Sex: Female
  Weight: 58.96 kg

DRUGS (2)
  1. BIJUVA [Suspect]
     Active Substance: ESTRADIOL\PROGESTERONE
     Dosage: 1 CAPSULES, 1X/DAY IN THE MORNING
     Route: 048
     Dates: start: 20190802, end: 20190807
  2. BIJUVA [Suspect]
     Active Substance: ESTRADIOL\PROGESTERONE
     Indication: MENOPAUSE
     Dosage: 1 CAPSULES, 1X/DAY LATER IN THE DAY, AFTER DINNER
     Route: 048
     Dates: start: 20190808

REACTIONS (7)
  - Nausea [Recovered/Resolved]
  - Diarrhoea [Recovered/Resolved]
  - Food poisoning [Recovered/Resolved]
  - Vomiting [Recovered/Resolved]
  - Product administration error [Recovered/Resolved]
  - Off label use [Not Recovered/Not Resolved]
  - Sleep disorder [Not Recovered/Not Resolved]

NARRATIVE: CASE EVENT DATE: 201908
